FAERS Safety Report 5015541-6 (Version None)
Quarter: 2006Q2

REPORT INFORMATION
  Report Type: 
  Country: None (occurrence: None)
  Receive Date: 20060425
  Receipt Date: 20060314
  Transmission Date: 20061013
  Serious: No
  Sender: FDA-Public Use
  Company Number: 2006-BP-01356BP

PATIENT
  Age: 18 Year
  Sex: Male
  Weight: 54.54 kg

DRUGS (5)
  1. APTIVUS [Suspect]
     Indication: HIV INFECTION
     Dosage: SEE TEXT
     Route: 048
     Dates: start: 20051215, end: 20060124
  2. RITONAVIR CAPSULES [Suspect]
     Dosage: SEE TEXT
  3. T20 [Concomitant]
  4. SUSTIVA [Concomitant]
  5. DAPSONE [Concomitant]

REACTIONS (5)
  - ARTHRALGIA [None]
  - COUGH [None]
  - DIARRHOEA [None]
  - HEPATIC ENZYME INCREASED [None]
  - WHEEZING [None]
